FAERS Safety Report 9221966 (Version 2)
Quarter: 2013Q3

REPORT INFORMATION
  Report Type: Spontaneous
  Country: US (occurrence: None)
  Receive Date: 20130408
  Receipt Date: 20130814
  Transmission Date: 20140515
  Serious: Yes (Hospitalization, Other)
  Sender: FDA-Public Use
  Company Number: 2012-002865

PATIENT
  Age: 69 Year
  Sex: Female

DRUGS (25)
  1. ACTONEL (RISEDRONATE SODIUM) TABLET, 35MG [Suspect]
     Indication: OSTEOPOROSIS
     Dosage: 35 MG ONCE WEEKLY, ORAL
     Route: 048
     Dates: start: 200407, end: 200606
  2. FOSAMAX (ALENDRONATE SODIUM) [Suspect]
     Indication: OSTEOPOROSIS
     Route: 048
     Dates: start: 201111
  3. ALENDRONATE (ALENDRONATE SODIUM) [Suspect]
     Indication: OSTEOPOROSIS
     Dosage: 70 MG ONCE WEEKLY, ORAL
     Route: 048
     Dates: start: 200804
  4. ACTIVELLA (ESTRADIOL NORETHISTERONE ACETATE) [Concomitant]
  5. LISINOPRIL (LISINOPRIL) [Concomitant]
  6. HYDROCHLOROTHIAZIDE (HYDROCHLOROTHIAZIDE) [Concomitant]
  7. DIOVAN (VALSARTAN) [Concomitant]
  8. AMLODIPINE (AMLODIPINE) [Concomitant]
  9. LEVOXIL (LEVOTHYROXINE SODIUM) [Concomitant]
  10. LIPITOR (ATORVASTATIN CALCIUM) [Concomitant]
  11. SIMVASTATIN (SIMVASTATIN) [Concomitant]
  12. NEXIUM (ESOMEPRAZOLE MAGNESIUM) [Concomitant]
  13. PRILOSEC [Concomitant]
  14. PROTONIX (PANTOPRAZOLE SODIUM SESQUIHYDRATE) [Concomitant]
  15. CLARINEX (LORATADINE, PSEUDOEPHEDRINE SULFATE) [Concomitant]
  16. ADVAIR (FLUTICASONE PROPIONATE, SALMETEROL XINAFOATE) [Concomitant]
  17. ALBUTEROL (SALBUTAMOL) [Concomitant]
  18. SINGULAIR [Suspect]
  19. DICLOFENAC (DICLOFENAC) [Concomitant]
  20. NABUMETONE (NABUMETONE) [Concomitant]
  21. BEXTRA (VALDECOXIB) [Concomitant]
  22. MULTIVITAMIN (ASCORBIC ACID, CALCIUM PANTOTHENATE, ERGOCALCIFEROL, NICOTINAMIDE, PYRIDOXINE HYDROCHLORIDE, RETINOL, RIBOFLAVIN, THIAMINE HYDROCHLORIDE) [Concomitant]
  23. OSCAL D (CALCIUM CARBONATE, COLECALCIFEROL) [Concomitant]
  24. VITAMIN E (TOCOPHEROL) [Concomitant]
  25. GLUCOSAMINE CHONDROITIN (CHONDROITIN SULFATE, GLUCOSAMINE) [Concomitant]

REACTIONS (8)
  - Femur fracture [None]
  - Stress fracture [None]
  - Pain in extremity [None]
  - Bone disorder [None]
  - Pain in extremity [None]
  - Low turnover osteopathy [None]
  - Pain [None]
  - Intervertebral disc protrusion [None]
